FAERS Safety Report 4350889-X (Version None)
Quarter: 2004Q2

REPORT INFORMATION
  Report Type: 
  Country: None (occurrence: None)
  Receive Date: 20040428
  Receipt Date: 20040419
  Transmission Date: 20050107
  Serious: Yes (Death)
  Sender: FDA-Public Use
  Company Number: US-JNJFOC-20040404232

PATIENT
  Sex: Male

DRUGS (1)
  1. RISPERDAL [Suspect]
     Dosage: ORAL
     Route: 048

REACTIONS (1)
  - ROAD TRAFFIC ACCIDENT [None]
